FAERS Safety Report 5826241-4 (Version None)
Quarter: 2008Q3

REPORT INFORMATION
  Report Type: 
  Country: None (occurrence: None)
  Receive Date: 20080723
  Receipt Date: 20080711
  Transmission Date: 20090109
  Serious: Yes (Death, Hospitalization, Other)
  Sender: FDA-Public Use
  Company Number: 50425

PATIENT
  Age: 61 Year
  Sex: Female
  Weight: 74 kg

DRUGS (2)
  1. MITOMYCIN [Suspect]
     Indication: BREAST CANCER
     Dosage: IV
     Route: 042
     Dates: start: 20070917
  2. MITOXANTRONE [Suspect]
     Indication: BREAST CANCER
     Dosage: IV
     Route: 042
     Dates: start: 20070917

REACTIONS (3)
  - MALIGNANT NEOPLASM PROGRESSION [None]
  - METASTASES TO CENTRAL NERVOUS SYSTEM [None]
  - NEUTROPENIA [None]
